FAERS Safety Report 23553251 (Version 1)
Quarter: 2024Q1

REPORT INFORMATION
  Report Type: Spontaneous
  Country: US (occurrence: US)
  Receive Date: 20240222
  Receipt Date: 20240222
  Transmission Date: 20240410
  Serious: Yes (Other)
  Sender: FDA-Public Use
  Company Number: US-AMNEAL PHARMACEUTICALS-2024-AMRX-00593

PATIENT
  Sex: Female
  Weight: 58.05 kg

DRUGS (3)
  1. RYTARY [Suspect]
     Active Substance: CARBIDOPA\LEVODOPA
     Indication: Parkinson^s disease
     Dosage: 48.75-195 MG, 01 CAPSULE BY MOUTH 04 TIMES A DAY
     Route: 048
     Dates: start: 202309
  2. RYTARY [Suspect]
     Active Substance: CARBIDOPA\LEVODOPA
     Dosage: 61.25-245 MG,01 CAPSULES, 4 /DAY
     Dates: start: 20231127
  3. RYTARY [Suspect]
     Active Substance: CARBIDOPA\LEVODOPA
     Dosage: 48.75-195 MG, 02 CAPSULES, 3X/DAY
     Route: 048

REACTIONS (1)
  - Urinary incontinence [Unknown]
